FAERS Safety Report 16744436 (Version 2)
Quarter: 2019Q3

REPORT INFORMATION
  Report Type: Spontaneous
  Country: US (occurrence: US)
  Receive Date: 20190827
  Receipt Date: 20190912
  Transmission Date: 20191005
  Serious: No
  Sender: FDA-Public Use
  Company Number: US-BIOGEN-2019BI00778302

PATIENT
  Sex: Male

DRUGS (1)
  1. TECFIDERA [Suspect]
     Active Substance: DIMETHYL FUMARATE
     Indication: MULTIPLE SCLEROSIS
     Route: 065
     Dates: start: 20190621

REACTIONS (6)
  - Hypoacusis [Not Recovered/Not Resolved]
  - Pain in extremity [Unknown]
  - Visual acuity reduced [Not Recovered/Not Resolved]
  - Memory impairment [Unknown]
  - Fatigue [Unknown]
  - Muscular weakness [Unknown]
